FAERS Safety Report 19447847 (Version 1)
Quarter: 2021Q2

REPORT INFORMATION
  Report Type: Spontaneous
  Country: US (occurrence: US)
  Receive Date: 20210621
  Receipt Date: 20210621
  Transmission Date: 20210717
  Serious: No
  Sender: FDA-Public Use
  Company Number: None

PATIENT
  Age: 56 Year
  Sex: Male

DRUGS (2)
  1. MOBIC [Concomitant]
     Active Substance: MELOXICAM
  2. ENBREL [Suspect]
     Active Substance: ETANERCEPT
     Indication: PSORIATIC ARTHROPATHY
     Route: 058
     Dates: start: 20170802

REACTIONS (2)
  - Therapy interrupted [None]
  - Cholecystectomy [None]

NARRATIVE: CASE EVENT DATE: 20210616
